FAERS Safety Report 25853510 (Version 1)
Quarter: 2025Q3

REPORT INFORMATION
  Report Type: Spontaneous
  Country: KR (occurrence: KR)
  Receive Date: 20250926
  Receipt Date: 20250926
  Transmission Date: 20251021
  Serious: Yes (Disabling, Other)
  Sender: JOHNSON AND JOHNSON
  Company Number: KR-JNJFOC-20250924724

PATIENT
  Sex: Female
  Weight: 50 kg

DRUGS (1)
  1. METHYLPHENIDATE HYDROCHLORIDE [Suspect]
     Active Substance: METHYLPHENIDATE HYDROCHLORIDE
     Indication: Product used for unknown indication
     Route: 065
     Dates: start: 20180701, end: 20240811

REACTIONS (1)
  - Dermatillomania [Not Recovered/Not Resolved]

NARRATIVE: CASE EVENT DATE: 20211202
